FAERS Safety Report 20564474 (Version 2)
Quarter: 2022Q1

REPORT INFORMATION
  Report Type: Spontaneous
  Country: AU (occurrence: AU)
  Receive Date: 20220308
  Receipt Date: 20220322
  Transmission Date: 20220424
  Serious: Yes (Other)
  Sender: FDA-Public Use
  Company Number: AU-SUN PHARMACEUTICAL INDUSTRIES LTD-2022R1-328576

PATIENT
  Sex: Male

DRUGS (1)
  1. ILUMYA [Suspect]
     Active Substance: TILDRAKIZUMAB-ASMN
     Indication: Psoriasis
     Dosage: UNK/ONCE EVERY 12 WEEKS
     Route: 058
     Dates: start: 20200827

REACTIONS (3)
  - Weight decreased [Unknown]
  - Decreased appetite [Unknown]
  - Product use issue [Unknown]
